FAERS Safety Report 6636454-X (Version None)
Quarter: 2010Q1

REPORT INFORMATION
  Report Type: 
  Country: None (occurrence: None)
  Receive Date: 20100316
  Receipt Date: 20100310
  Transmission Date: 20100710
  Serious: Yes (Hospitalization)
  Sender: FDA-Public Use
  Company Number: US-PFIZER INC-2010019709

PATIENT
  Sex: Male
  Weight: 107.48 kg

DRUGS (4)
  1. BLINDED *PLACEBO [Suspect]
     Indication: CARDIAC FAILURE CONGESTIVE
     Dosage: UNK, 3X/DAY
     Dates: start: 20091027
  2. SILDENAFIL CITRATE [Suspect]
     Indication: CARDIAC FAILURE CONGESTIVE
     Dosage: UNK, 3X/DAY
     Dates: start: 20091027
  3. FUROSEMIDE [Concomitant]
     Dosage: 80 MG, UNK
  4. ACETYLSALICYLIC ACID [Concomitant]

REACTIONS (1)
  - SYNCOPE [None]
